FAERS Safety Report 12895057 (Version 1)
Quarter: 2016Q4

REPORT INFORMATION
  Report Type: Spontaneous
  Country: BR (occurrence: BR)
  Receive Date: 20161029
  Receipt Date: 20161029
  Transmission Date: 20170207
  Serious: Yes (Hospitalization)
  Sender: FDA-Public Use
  Company Number: BR-AMGEN-BRASP2015080698

PATIENT
  Age: 35 Year
  Sex: Female

DRUGS (1)
  1. ENBREL [Suspect]
     Active Substance: ETANERCEPT
     Indication: PRODUCT USED FOR UNKNOWN INDICATION
     Dosage: UNK
     Route: 065
     Dates: start: 20150724

REACTIONS (11)
  - Blister infected [Unknown]
  - Dyspnoea [Recovering/Resolving]
  - Chest pain [Recovered/Resolved]
  - Local swelling [Unknown]
  - Alopecia [Unknown]
  - Musculoskeletal chest pain [Recovered/Resolved]
  - Pain [Unknown]
  - Atrophy [Unknown]
  - Wound [Unknown]
  - Skin disorder [Unknown]
  - Erythema [Unknown]

NARRATIVE: CASE EVENT DATE: 20150724
